FAERS Safety Report 16754385 (Version 10)
Quarter: 2020Q2

REPORT INFORMATION
  Report Type: Spontaneous
  Country: US (occurrence: US)
  Receive Date: 20190829
  Receipt Date: 20200423
  Transmission Date: 20200713
  Serious: Yes (Other)
  Sender: FDA-Public Use
  Company Number: US-PFIZER INC-2019370581

PATIENT
  Age: 79 Year
  Sex: Female
  Weight: 81 kg

DRUGS (2)
  1. IBRANCE [Suspect]
     Active Substance: PALBOCICLIB
     Indication: BREAST CANCER METASTATIC
     Dosage: 100 MG, 1X/DAY
     Dates: start: 20190530
  2. FASLODEX [Concomitant]
     Active Substance: FULVESTRANT
     Dosage: UNK, MONTHLY
     Dates: start: 20190719

REACTIONS (10)
  - Neoplasm progression [Not Recovered/Not Resolved]
  - Feeling cold [Unknown]
  - Tremor [Unknown]
  - Diabetes mellitus [Unknown]
  - Emotional disorder [Unknown]
  - Renal disorder [Unknown]
  - Hypertension [Unknown]
  - Fatigue [Recovering/Resolving]
  - Gastroenteritis viral [Unknown]
  - Asthenia [Unknown]

NARRATIVE: CASE EVENT DATE: 20190819
